FAERS Safety Report 10868473 (Version 5)
Quarter: 2016Q3

REPORT INFORMATION
  Report Type: Spontaneous
  Country: US (occurrence: US)
  Receive Date: 20150225
  Receipt Date: 20160831
  Transmission Date: 20161109
  Serious: Yes (Other)
  Sender: FDA-Public Use
  Company Number: US-LUNDBECK-DKLU1108444

PATIENT
  Age: 45 Year
  Sex: Female

DRUGS (6)
  1. NORTHERA [Suspect]
     Active Substance: DROXIDOPA
     Indication: AUTONOMIC NEUROPATHY
     Route: 065
     Dates: start: 20150129
  2. NORTHERA [Suspect]
     Active Substance: DROXIDOPA
     Dosage: TITRATED TO 600 MG
     Route: 065
     Dates: start: 201607
  3. NORTHERA [Suspect]
     Active Substance: DROXIDOPA
     Route: 065
     Dates: start: 201511
  4. PREDNISONE. [Suspect]
     Active Substance: PREDNISONE
     Indication: PRODUCT USED FOR UNKNOWN INDICATION
     Route: 065
     Dates: end: 201506
  5. NORTHERA [Suspect]
     Active Substance: DROXIDOPA
     Dosage: TAPERED DOWN TO 300 MG
     Route: 065
  6. NORTHERA [Suspect]
     Active Substance: DROXIDOPA
     Indication: SYNCOPE
     Route: 065

REACTIONS (9)
  - Respiratory failure [Unknown]
  - Dizziness [Unknown]
  - Drug effect decreased [Unknown]
  - Candida infection [Unknown]
  - Blood pressure increased [Recovered/Resolved]
  - Chest pain [Unknown]
  - Heart rate increased [Unknown]
  - Feeling abnormal [Unknown]
  - Headache [Unknown]

NARRATIVE: CASE EVENT DATE: 201511
